FAERS Safety Report 24415737 (Version 1)
Quarter: 2024Q4

REPORT INFORMATION
  Report Type: Spontaneous
  Country: CN (occurrence: CN)
  Receive Date: 20241009
  Receipt Date: 20241009
  Transmission Date: 20250114
  Serious: Yes (Life-Threatening)
  Sender: ACCORD
  Company Number: None

PATIENT
  Age: 46 Year
  Sex: Female

DRUGS (4)
  1. TRASTUZUMAB [Suspect]
     Active Substance: TRASTUZUMAB
     Indication: Breast neoplasm
     Dosage: STRENGTH: 150 MILLIGRAM, QD, IV DRIP
     Route: 042
     Dates: start: 20240827, end: 20240827
  2. CARBOPLATIN [Suspect]
     Active Substance: CARBOPLATIN
     Indication: Breast neoplasm
     Dosage: 570 MILLIGRAM, QD, IV DRIP
     Route: 042
     Dates: start: 20240827, end: 20240827
  3. PYROTINIB [Suspect]
     Active Substance: PYROTINIB
     Indication: Breast neoplasm
     Dosage: 320 MILLIGRAM, QD
     Route: 048
     Dates: start: 20240827, end: 20240919
  4. PACLITAXEL [Suspect]
     Active Substance: PACLITAXEL
     Indication: Breast neoplasm
     Dosage: 190 MILLIGRAM, WEEKLY, IV DRIP
     Route: 042
     Dates: start: 20240827, end: 20240903

REACTIONS (3)
  - Granulocyte count decreased [Recovering/Resolving]
  - Platelet count decreased [Recovering/Resolving]
  - Haemoglobin decreased [Unknown]

NARRATIVE: CASE EVENT DATE: 20240905
